FAERS Safety Report 6108407-1 (Version None)
Quarter: 2009Q1

REPORT INFORMATION
  Report Type: 
  Country: None (occurrence: None)
  Receive Date: 20090309
  Receipt Date: 20090302
  Transmission Date: 20090719
  Serious: Yes (Other)
  Sender: FDA-Public Use
  Company Number: PHHY2009BE06292

PATIENT
  Sex: Male

DRUGS (11)
  1. RASILEZ [Suspect]
  2. ACE INHIBITOR NOS [Interacting]
  3. ZESTRIL [Concomitant]
  4. BURINEX [Concomitant]
  5. CARDIO ASPIRINA [Concomitant]
  6. CRESTOR [Concomitant]
  7. LYRICA [Concomitant]
  8. RIVOTRIL [Concomitant]
  9. XYZAL [Concomitant]
  10. INSULIN [Concomitant]
  11. KAYEXALATE [Concomitant]

REACTIONS (2)
  - CREATININE RENAL CLEARANCE DECREASED [None]
  - HYPERKALAEMIA [None]
